FAERS Safety Report 17511380 (Version 1)
Quarter: 2020Q1

REPORT INFORMATION
  Report Type: Spontaneous
  Country: US (occurrence: US)
  Receive Date: 20200306
  Receipt Date: 20200306
  Transmission Date: 20200409
  Serious: Yes (Hospitalization, Disabling)
  Sender: FDA-Public Use
  Company Number: US-JNJFOC-20200242012

PATIENT
  Age: 34 Year
  Sex: Female

DRUGS (1)
  1. INVOKANA [Suspect]
     Active Substance: CANAGLIFLOZIN
     Indication: TYPE 2 DIABETES MELLITUS
     Route: 048

REACTIONS (6)
  - Osteomyelitis [Unknown]
  - Leg amputation [Unknown]
  - Foot amputation [Unknown]
  - Diabetic foot [Unknown]
  - Impaired healing [Unknown]
  - Cellulitis [Unknown]

NARRATIVE: CASE EVENT DATE: 20130517
